FAERS Safety Report 18088776 (Version 1)
Quarter: 2020Q3

REPORT INFORMATION
  Report Type: Spontaneous
  Country: US (occurrence: US)
  Receive Date: 20200729
  Receipt Date: 20200729
  Transmission Date: 20201103
  Serious: Yes (Other)
  Sender: FDA-Public Use
  Company Number: US-GILEAD-2020-0486244

PATIENT
  Age: 57 Year
  Sex: Female
  Weight: 61 kg

DRUGS (3)
  1. REMDESIVIR. [Suspect]
     Active Substance: REMDESIVIR
     Indication: COVID-19
     Dosage: 200 MG, ONCE
     Route: 065
     Dates: start: 20200722, end: 20200722
  2. REMDESIVIR. [Suspect]
     Active Substance: REMDESIVIR
     Dosage: 100 UNK
     Route: 065
     Dates: start: 20200723, end: 20200723
  3. REMDESIVIR. [Suspect]
     Active Substance: REMDESIVIR
     Dosage: 100 UNK
     Route: 065
     Dates: start: 20200725, end: 20200727

REACTIONS (1)
  - Product dose omission issue [Recovered/Resolved]

NARRATIVE: CASE EVENT DATE: 20200724
